APPROVED DRUG PRODUCT: PEG-3350, POTASSIUM CHLORIDE, SODIUM BICARBONATE, SODIUM CHLORIDE
Active Ingredient: POLYETHYLENE GLYCOL 3350; POTASSIUM CHLORIDE; SODIUM BICARBONATE; SODIUM CHLORIDE
Strength: 420GM/BOT;1.48GM/BOT;5.72GM/BOT;11.2GM/BOT
Dosage Form/Route: FOR SOLUTION;ORAL
Application: A202060 | Product #001
Applicant: SOLIS PHARMACEUTICALS INC
Approved: Mar 8, 2017 | RLD: No | RS: No | Type: DISCN